FAERS Safety Report 6335187-7 (Version None)
Quarter: 2009Q3

REPORT INFORMATION
  Report Type: 
  Country: None (occurrence: None)
  Receive Date: 20090828
  Receipt Date: 20090828
  Transmission Date: 20100115
  Serious: No
  Sender: FDA-Public Use
  Company Number: None

PATIENT
  Sex: Male
  Weight: 67.586 kg

DRUGS (2)
  1. ENABLEX [Suspect]
     Indication: POLLAKIURIA
     Dosage: ONE PILL EACH DAY ORAL
     Route: 048
     Dates: start: 20090612, end: 20090708
  2. FLOMAX [Suspect]
     Indication: POLLAKIURIA
     Dosage: ONE CAPSULE EACH DAY ORAL
     Route: 048
     Dates: start: 20090612, end: 20090722

REACTIONS (9)
  - CONDITION AGGRAVATED [None]
  - CONSTIPATION [None]
  - DIZZINESS [None]
  - DRY MOUTH [None]
  - EYE DISCHARGE [None]
  - FOREIGN BODY SENSATION IN EYES [None]
  - MUSCLE SPASMS [None]
  - NIGHT SWEATS [None]
  - URINE OUTPUT DECREASED [None]
